FAERS Safety Report 5318862-2 (Version None)
Quarter: 2007Q2

REPORT INFORMATION
  Report Type: 
  Country: None (occurrence: None)
  Receive Date: 20070508
  Receipt Date: 20070425
  Transmission Date: 20071010
  Serious: Yes (Hospitalization)
  Sender: FDA-Public Use
  Company Number: JP-ROCHE-486791

PATIENT
  Age: 13 Year
  Sex: Female
  Weight: 43 kg

DRUGS (5)
  1. TAMIFLU [Suspect]
     Route: 048
     Dates: start: 20070228, end: 20070228
  2. ASVERIN [Concomitant]
     Dosage: GENERIC REPORTED AS TIPEPIDINE HIBENZATE.
     Route: 048
     Dates: start: 20070228, end: 20070228
  3. MUCODYNE [Concomitant]
     Route: 048
     Dates: start: 20070228, end: 20070228
  4. PROMETHAZINE HCL [Concomitant]
     Route: 048
     Dates: start: 20070228, end: 20070228
  5. TRANSAMIN [Concomitant]
     Route: 048
     Dates: start: 20070228, end: 20070228

REACTIONS (1)
  - LOSS OF CONSCIOUSNESS [None]
